FAERS Safety Report 24895034 (Version 3)
Quarter: 2025Q1

REPORT INFORMATION
  Report Type: Spontaneous
  Country: GB (occurrence: GB)
  Receive Date: 20250128
  Receipt Date: 20250213
  Transmission Date: 20250409
  Serious: Yes (Hospitalization)
  Sender: MYLAN
  Company Number: GB-MYLANLABS-2025M1007212

PATIENT
  Age: 37 Year
  Sex: Female

DRUGS (3)
  1. CLOZARIL [Suspect]
     Active Substance: CLOZAPINE
     Indication: Schizophrenia
     Dosage: BID (175 MG MANE, 200 MG NOCTE)
     Route: 048
     Dates: start: 20220207
  2. LEVOTHYROXINE SODIUM [Concomitant]
     Active Substance: LEVOTHYROXINE SODIUM
     Dosage: 50 MICROGRAM, AM (MANE)
     Route: 048
  3. LITHIUM [Concomitant]
     Active Substance: LITHIUM
     Dosage: 800 MILLIGRAM, PM (NOCTE)
     Route: 048

REACTIONS (2)
  - Mental impairment [Unknown]
  - Eosinophilia [Unknown]

NARRATIVE: CASE EVENT DATE: 20250122
